FAERS Safety Report 15696584 (Version 1)
Quarter: 2018Q4

REPORT INFORMATION
  Report Type: Spontaneous
  Country: None (occurrence: US)
  Receive Date: 20181206
  Receipt Date: 20181206
  Transmission Date: 20190205
  Serious: Yes (Other)
  Sender: FDA-Public Use
  Company Number: US-ASCEND THERAPEUTICS-2059801

PATIENT
  Age: 51 Year
  Sex: Female

DRUGS (3)
  1. PROMETRIUM [Concomitant]
     Active Substance: PROGESTERONE
  2. ESTROGEL [Suspect]
     Active Substance: ESTRADIOL
     Indication: POSTMENOPAUSAL HAEMORRHAGE
     Route: 062
     Dates: start: 201809
  3. ESTRADIOL. [Suspect]
     Active Substance: ESTRADIOL
     Route: 062
     Dates: start: 201810, end: 20181112

REACTIONS (3)
  - Product substitution issue [Unknown]
  - Drug ineffective [Recovered/Resolved]
  - Haemorrhage [Recovered/Resolved]
